FAERS Safety Report 20180184 (Version 8)
Quarter: 2023Q1

REPORT INFORMATION
  Report Type: Report from Study
  Country: MA (occurrence: MA)
  Receive Date: 20211214
  Receipt Date: 20230103
  Transmission Date: 20230417
  Serious: Yes (Other)
  Sender: FDA-Public Use
  Company Number: MA-NOVARTISPH-NVSC2021MA284283

PATIENT
  Sex: Male
  Weight: 100 kg

DRUGS (2)
  1. ELTROMBOPAG OLAMINE [Suspect]
     Active Substance: ELTROMBOPAG OLAMINE
     Indication: Thrombocytopenia
     Dosage: 50 MG
     Route: 048
     Dates: start: 20210301
  2. ELTROMBOPAG OLAMINE [Suspect]
     Active Substance: ELTROMBOPAG OLAMINE
     Dosage: 75 MG, (3 TABLETS PER DAY)
     Route: 048

REACTIONS (7)
  - Haemorrhage [Unknown]
  - Decreased immune responsiveness [Unknown]
  - Swelling [Unknown]
  - Nasopharyngitis [Unknown]
  - Viral infection [Unknown]
  - Platelet count decreased [Unknown]
  - Drug ineffective [Recovering/Resolving]
